APPROVED DRUG PRODUCT: DEMECLOCYCLINE HYDROCHLORIDE
Active Ingredient: DEMECLOCYCLINE HYDROCHLORIDE
Strength: 150MG
Dosage Form/Route: TABLET;ORAL
Application: A065447 | Product #001 | TE Code: AB
Applicant: EPIC PHARMA LLC
Approved: Aug 18, 2015 | RLD: No | RS: No | Type: RX